FAERS Safety Report 9966594 (Version 2)
Quarter: 2014Q1

REPORT INFORMATION
  Report Type: Report from Study
  Country: PR (occurrence: PR)
  Receive Date: 20140305
  Receipt Date: 20140305
  Transmission Date: 20141002
  Serious: No
  Sender: FDA-Public Use
  Company Number: PR-ABBVIE-12P-131-1005426-00

PATIENT
  Sex: Female
  Weight: 108.96 kg

DRUGS (14)
  1. HUMIRA [Suspect]
     Indication: PSORIASIS
     Route: 058
     Dates: start: 20120525, end: 201211
  2. HUMIRA [Suspect]
     Route: 058
  3. VITAMIN C [Concomitant]
     Indication: OSTEOPENIA
     Route: 048
  4. ATENOLOL [Concomitant]
     Indication: HYPERTENSION
     Route: 048
  5. VASOTEC [Concomitant]
     Indication: HYPERTENSION
  6. ASPIRIN [Concomitant]
     Indication: CARDIAC DISORDER
  7. ASPIRIN [Concomitant]
     Indication: PROPHYLAXIS
  8. FOSAMAX [Concomitant]
     Indication: OSTEOPENIA
     Route: 048
  9. D3 [Concomitant]
     Indication: PRODUCT USED FOR UNKNOWN INDICATION
     Route: 048
  10. PRILOSEC [Concomitant]
     Indication: GASTRIC DISORDER
     Route: 048
  11. ZANTAC [Concomitant]
     Indication: GASTRIC DISORDER
     Route: 048
  12. NEURONTIN [Concomitant]
     Indication: PRODUCT USED FOR UNKNOWN INDICATION
     Route: 048
  13. OMEGA 3 [Concomitant]
     Indication: PRODUCT USED FOR UNKNOWN INDICATION
     Route: 048
  14. FLEXERIL [Concomitant]
     Indication: PAIN
     Route: 048

REACTIONS (1)
  - Nasopharyngitis [Recovered/Resolved]
